FAERS Safety Report 21084234 (Version 2)
Quarter: 2022Q3

REPORT INFORMATION
  Report Type: Spontaneous
  Country: IT (occurrence: IT)
  Receive Date: 20220714
  Receipt Date: 20220728
  Transmission Date: 20221026
  Serious: Yes (Other)
  Sender: FDA-Public Use
  Company Number: IT-TEVA-2022-IT-2053870

PATIENT
  Age: 28 Year
  Sex: Male

DRUGS (9)
  1. PREDNISONE [Suspect]
     Active Substance: PREDNISONE
     Indication: Acute lymphocytic leukaemia
     Dosage: PART OF GIMEMA LAL 1913 PROTOCOL
     Route: 065
  2. PEGASPARGASE [Suspect]
     Active Substance: PEGASPARGASE
     Indication: Acute lymphocytic leukaemia
     Dosage: PART OF GIMEMA LAL 1913 PROTOCOL
     Route: 065
     Dates: start: 2020, end: 2020
  3. DEXAMETHASONE [Suspect]
     Active Substance: DEXAMETHASONE
     Indication: Acute lymphocytic leukaemia
     Dosage: PART OF GIMEMA LAL 1913 PROTOCOL
     Route: 065
  4. CYCLOPHOSPHAMIDE [Concomitant]
     Active Substance: CYCLOPHOSPHAMIDE
     Indication: Acute lymphocytic leukaemia
     Dosage: PART OF GIMEMA LAL 1913 PROTOCOL
     Route: 065
  5. IDARUBICIN [Concomitant]
     Active Substance: IDARUBICIN
     Indication: Acute lymphocytic leukaemia
     Dosage: PART OF GIMEMA LAL 1913 PROTOCOL
     Route: 065
  6. VINCRISTINE [Concomitant]
     Active Substance: VINCRISTINE
     Indication: Acute lymphocytic leukaemia
     Dosage: PART OF GIMEMA LAL 1913 PROTOCOL
     Route: 065
  7. CYTARABINE [Concomitant]
     Active Substance: CYTARABINE
     Indication: Acute lymphocytic leukaemia
     Dosage: PART OF GIMEMA LAL 1913 PROTOCOL
     Route: 065
  8. METHOTREXATE [Concomitant]
     Active Substance: METHOTREXATE
     Indication: Acute lymphocytic leukaemia
     Dosage: PART OF GIMEMA LAL 1913 PROTOCOL
     Route: 065
  9. MERCAPTOPURINE [Concomitant]
     Active Substance: MERCAPTOPURINE
     Indication: Acute lymphocytic leukaemia
     Dosage: PART OF GIMEMA LAL 1913 PROTOCOL
     Route: 065

REACTIONS (1)
  - Hypertriglyceridaemia [Recovered/Resolved]
